FAERS Safety Report 23159901 (Version 1)
Quarter: 2023Q4

REPORT INFORMATION
  Report Type: Spontaneous
  Country: US (occurrence: US)
  Receive Date: 20231108
  Receipt Date: 20231108
  Transmission Date: 20240110
  Serious: Yes (Hospitalization)
  Sender: FDA-Public Use
  Company Number: US-VERTEX PHARMACEUTICALS-2023-016534

PATIENT

DRUGS (1)
  1. TRIKAFTA [Suspect]
     Active Substance: ELEXACAFTOR\IVACAFTOR\TEZACAFTOR
     Indication: Cystic fibrosis
     Dosage: UNK FREQUENCY
     Route: 048

REACTIONS (3)
  - Distal intestinal obstruction syndrome [Unknown]
  - Infective pulmonary exacerbation of cystic fibrosis [Unknown]
  - Pulmonary function test decreased [Not Recovered/Not Resolved]
